FAERS Safety Report 9373937 (Version 1)
Quarter: 2013Q2

REPORT INFORMATION
  Report Type: Spontaneous
  Country: GB (occurrence: GB)
  Receive Date: 20130628
  Receipt Date: 20130628
  Transmission Date: 20140414
  Serious: Yes (Hospitalization, Other)
  Sender: FDA-Public Use
  Company Number: GB-BRISTOL-MYERS SQUIBB COMPANY-19040708

PATIENT
  Age: 72 Year
  Sex: Male
  Weight: 98 kg

DRUGS (19)
  1. METFORMIN HCL [Suspect]
     Route: 048
     Dates: start: 20010215, end: 20130420
  2. NIFEDIPINE [Concomitant]
  3. ASPIRIN [Concomitant]
  4. ATENOLOL [Concomitant]
  5. CLARITHROMYCIN [Concomitant]
  6. CORACTEN [Concomitant]
  7. EXENATIDE [Concomitant]
  8. FLUCLOXACILLIN [Concomitant]
  9. INDAPAMIDE [Concomitant]
  10. LEVOTHYROXINE [Concomitant]
  11. LOPERAMIDE [Concomitant]
  12. LOSARTAN [Concomitant]
  13. METHYLDOPA [Concomitant]
  14. OMEPRAZOLE [Concomitant]
  15. PREDNISOLONE [Concomitant]
  16. QUININE BISULFATE [Concomitant]
  17. SALBUTAMOL [Concomitant]
     Dosage: INHALATION VAPOUR
  18. SIMVASTATIN [Concomitant]
  19. SOLIFENACIN SUCCINATE [Concomitant]

REACTIONS (10)
  - Renal failure acute [Recovered/Resolved]
  - Anuria [Unknown]
  - Blood creatinine abnormal [Unknown]
  - Dehydration [Unknown]
  - Drug level above therapeutic [Unknown]
  - Malaise [Unknown]
  - Azotaemia [Unknown]
  - Diarrhoea [Unknown]
  - Acidosis [Unknown]
  - Vomiting [Unknown]
